FAERS Safety Report 8313518-6 (Version None)
Quarter: 2012Q2

REPORT INFORMATION
  Report Type: 
  Country: None (occurrence: None)
  Receive Date: 20120426
  Receipt Date: 20120412
  Transmission Date: 20120825
  Serious: Yes (Other)
  Sender: FDA-Public Use
  Company Number: US-UCBSA-055844

PATIENT
  Age: 11 Year
  Sex: Male

DRUGS (4)
  1. MEGESTROL ACETATE [Concomitant]
  2. SUCRALFATE [Concomitant]
  3. OMEPRAZOLE [Suspect]
     Dosage: 40 MG
  4. METHOTREXATE [Concomitant]
     Indication: BONE SARCOMA

REACTIONS (1)
  - DRUG CLEARANCE DECREASED [None]
